FAERS Safety Report 7600363 (Version 2)
Quarter: 2012Q4

REPORT INFORMATION
  Report Type: 
  Country: TR (occurrence: TR)
  Receive Date: 20100921
  Receipt Date: 20121120
  Transmission Date: 20130627
  Serious: Yes (Hospitalization)
  Sender: FDA-Public Use
  Company Number: TR-MYLANLABS-2010S1016411

PATIENT
  Age: 26 Year
  Sex: Male

DRUGS (3)
  1. VALPROIC ACID [Suspect]
     Indication: BIPOLAR DISORDER
     Dosage: Dose for 4 days prior to admission
  2. QUETIAPINE [Suspect]
     Indication: BIPOLAR DISORDER
     Dosage: Dose for 4 days prior to admission
  3. LITHIUM [Concomitant]
     Indication: BIPOLAR DISORDER
     Dosage: Dose for 4 days prior to admission

REACTIONS (4)
  - Aspartate aminotransferase increased [Recovered/Resolved]
  - Alanine aminotransferase increased [Recovered/Resolved]
  - Blood lactate dehydrogenase increased [Recovered/Resolved]
  - Blood creatine phosphokinase increased [Recovered/Resolved]
